FAERS Safety Report 16878251 (Version 3)
Quarter: 2021Q4

REPORT INFORMATION
  Report Type: Spontaneous
  Country: BR (occurrence: BR)
  Receive Date: 20191002
  Receipt Date: 20211202
  Transmission Date: 20220303
  Serious: Yes (Other)
  Sender: FDA-Public Use
  Company Number: PHHY2019BR227199

PATIENT
  Sex: Female

DRUGS (2)
  1. TIMOLOL MALEATE\TRAVOPROST [Suspect]
     Active Substance: TIMOLOL MALEATE\TRAVOPROST
     Indication: Product used for unknown indication
     Route: 065
  2. COMBIGAN [Concomitant]
     Active Substance: BRIMONIDINE TARTRATE\TIMOLOL MALEATE
     Indication: Angle closure glaucoma
     Route: 065

REACTIONS (3)
  - Type 2 diabetes mellitus [Unknown]
  - Visual impairment [Unknown]
  - Hypertension [Unknown]

NARRATIVE: CASE EVENT DATE: 20080101
